FAERS Safety Report 10422043 (Version 2)
Quarter: 2014Q3

REPORT INFORMATION
  Report Type: Spontaneous
  Country: US (occurrence: US)
  Receive Date: 20140901
  Receipt Date: 20140901
  Transmission Date: 20150326
  Serious: Yes (Hospitalization)
  Sender: FDA-Public Use
  Company Number: US-DURATA THERAPEUTICS INTERNATIONAL-US-DUR-14-000186

PATIENT
  Sex: Male

DRUGS (1)
  1. DALVANCE [Suspect]
     Active Substance: DALBAVANCIN
     Indication: DIABETIC FOOT INFECTION
     Route: 041
     Dates: start: 20140808, end: 20140808

REACTIONS (3)
  - Sepsis [Recovered/Resolved]
  - Foot amputation [None]
  - Condition aggravated [Recovered/Resolved]

NARRATIVE: CASE EVENT DATE: 20140808
